FAERS Safety Report 4597943-5 (Version None)
Quarter: 2005Q1

REPORT INFORMATION
  Report Type: 
  Country: None (occurrence: None)
  Receive Date: 20050301
  Receipt Date: 20050214
  Transmission Date: 20050727
  Serious: Yes (Hospitalization)
  Sender: FDA-Public Use
  Company Number: MK200502-0144-1

PATIENT
  Age: 51 Year
  Sex: Male

DRUGS (1)
  1. METHADOSE [Suspect]
     Indication: DRUG DEPENDENCE
     Dosage: 700 MG, DAILY

REACTIONS (15)
  - ABNORMAL BEHAVIOUR [None]
  - AGITATION [None]
  - BLOOD CREATINE PHOSPHOKINASE MB INCREASED [None]
  - BLOOD SODIUM DECREASED [None]
  - CONFUSIONAL STATE [None]
  - ELECTROCARDIOGRAM QT CORRECTED INTERVAL PROLONGED [None]
  - ELECTROCARDIOGRAM QT PROLONGED [None]
  - ELECTROCARDIOGRAM T WAVE ABNORMAL [None]
  - ELECTROCARDIOGRAM T WAVE PEAKED [None]
  - HYPOKALAEMIA [None]
  - HYPOTENSION [None]
  - INTENTIONAL MISUSE [None]
  - TORSADE DE POINTES [None]
  - TROPONIN T INCREASED [None]
  - WHITE BLOOD CELL COUNT INCREASED [None]
